FAERS Safety Report 4529341-4 (Version None)
Quarter: 2004Q4

REPORT INFORMATION
  Report Type: 
  Country: None (occurrence: None)
  Receive Date: 20041215
  Receipt Date: 20041215
  Transmission Date: 20050328
  Serious: No
  Sender: FDA-Public Use
  Company Number: None

PATIENT
  Age: 43 Year
  Sex: Female
  Weight: 58.9676 kg

DRUGS (1)
  1. MIRTAZAPINE [Suspect]
     Indication: DEPRESSION
     Dosage: 45 MG PO QD
     Route: 048
     Dates: start: 20030101

REACTIONS (3)
  - HEADACHE [None]
  - PHARMACEUTICAL PRODUCT COMPLAINT [None]
  - THERAPEUTIC RESPONSE DECREASED [None]
